FAERS Safety Report 24108019 (Version 1)
Quarter: 2024Q3

REPORT INFORMATION
  Report Type: Report from Study
  Country: TR (occurrence: TR)
  Receive Date: 20240718
  Receipt Date: 20240718
  Transmission Date: 20241016
  Serious: Yes (Other)
  Sender: ROCHE
  Company Number: TR-ROCHE-10000026101

PATIENT

DRUGS (7)
  1. MABTHERA [Suspect]
     Active Substance: RITUXIMAB
     Indication: Prophylaxis against transplant rejection
     Route: 065
  2. ETOPOSIDE [Suspect]
     Active Substance: ETOPOSIDE
     Indication: Prophylaxis against transplant rejection
     Route: 065
  3. DOXORUBICIN [Suspect]
     Active Substance: DOXORUBICIN
     Indication: Prophylaxis against transplant rejection
     Route: 065
  4. VINCRISTINE [Suspect]
     Active Substance: VINCRISTINE
     Indication: Prophylaxis against transplant rejection
     Route: 065
  5. PREDNISONE [Suspect]
     Active Substance: PREDNISONE
     Indication: Prophylaxis against transplant rejection
     Route: 065
  6. CYCLOPHOSPHAMIDE [Suspect]
     Active Substance: CYCLOPHOSPHAMIDE
     Indication: Prophylaxis against transplant rejection
     Route: 065
  7. MESNA [Suspect]
     Active Substance: MESNA
     Indication: Prophylaxis against transplant rejection
     Route: 065

REACTIONS (9)
  - Stomatitis [Unknown]
  - Nausea [Unknown]
  - Gingival pain [Unknown]
  - Oral pain [Unknown]
  - Dysphagia [Unknown]
  - Oesophagitis [Unknown]
  - Diarrhoea [Unknown]
  - Weight decreased [Unknown]
  - Dry mouth [Unknown]
